FAERS Safety Report 25804441 (Version 1)
Quarter: 2025Q3

REPORT INFORMATION
  Report Type: Spontaneous
  Country: EU (occurrence: EU)
  Receive Date: 20250915
  Receipt Date: 20250915
  Transmission Date: 20251021
  Serious: Yes (Death, Hospitalization, Other)
  Sender: MERCK SHARP & DOHME LLC
  Company Number: EU-QIL-007189

PATIENT
  Age: 58 Year
  Sex: Male

DRUGS (2)
  1. DAPTOMYCIN [Suspect]
     Active Substance: DAPTOMYCIN
  2. CEFTRIAXONE [Suspect]
     Active Substance: CEFTRIAXONE

REACTIONS (1)
  - Cardiac arrest [Fatal]
